FAERS Safety Report 5506924-6 (Version None)
Quarter: 2007Q4

REPORT INFORMATION
  Report Type: 
  Country: None (occurrence: None)
  Receive Date: 20071105
  Receipt Date: 20071024
  Transmission Date: 20080405
  Serious: Yes (Hospitalization, Other)
  Sender: FDA-Public Use
  Company Number: CO-PFIZER INC-2007089713

PATIENT
  Age: 17 Year
  Sex: Male

DRUGS (2)
  1. PROVERA [Suspect]
     Route: 048
     Dates: start: 20071021, end: 20071021
  2. VIBAZINE [Suspect]
     Route: 048
     Dates: start: 20071021, end: 20071021

REACTIONS (4)
  - HEADACHE [None]
  - MUSCLE SPASMS [None]
  - SOMNOLENCE [None]
  - SUICIDE ATTEMPT [None]
